FAERS Safety Report 5059773-X (Version None)
Quarter: 2006Q3

REPORT INFORMATION
  Report Type: 
  Country: None (occurrence: None)
  Receive Date: 20060724
  Receipt Date: 20060713
  Transmission Date: 20061208
  Serious: Yes (Disabling)
  Sender: FDA-Public Use
  Company Number: US-MERCK-0607USA02569

PATIENT
  Sex: Male

DRUGS (1)
  1. CRIXIVAN [Suspect]
     Indication: PROPHYLAXIS AGAINST HIV INFECTION
     Route: 048

REACTIONS (2)
  - HORSESHOE KIDNEY [None]
  - NEPHROLITHIASIS [None]
